FAERS Safety Report 4534518-8 (Version None)
Quarter: 2004Q4

REPORT INFORMATION
  Report Type: 
  Country: None (occurrence: None)
  Receive Date: 20041214
  Receipt Date: 20040716
  Transmission Date: 20050328
  Serious: No
  Sender: FDA-Public Use
  Company Number: USA040772876

PATIENT
  Sex: Male

DRUGS (1)
  1. CIALIS [Suspect]
     Indication: ERECTILE DYSFUNCTION
     Dosage: 20 MG/1 OTHER
     Route: 050
     Dates: start: 20040628, end: 20040709

REACTIONS (1)
  - DRUG INEFFECTIVE [None]
